FAERS Safety Report 6314537-1 (Version None)
Quarter: 2009Q3

REPORT INFORMATION
  Report Type: 
  Country: None (occurrence: None)
  Receive Date: 20090819
  Receipt Date: 20090810
  Transmission Date: 20100115
  Serious: Yes (Other)
  Sender: FDA-Public Use
  Company Number: PHHY2008BR05950

PATIENT
  Sex: Male
  Weight: 100 kg

DRUGS (11)
  1. LEPONEX [Suspect]
     Indication: DEPRESSION
     Dosage: 12.5 MG, QD
     Route: 048
     Dates: start: 20080723
  2. LEPONEX [Suspect]
     Dosage: 25 MG, QD
  3. LEPONEX [Suspect]
     Dosage: 25 MG, BID
  4. LEPONEX [Suspect]
     Dosage: 100 MG, 1 TABLET DAILY
     Route: 048
     Dates: start: 20081001, end: 20090812
  5. PAMELOR [Concomitant]
     Indication: DEPRESSION
     Dosage: 50 MG, QD
     Dates: start: 20030101
  6. RIVOTRIL [Concomitant]
     Indication: SLEEP DISORDER
     Dosage: 2 MG, QD, 1 TABLET AT NIGHT
     Dates: start: 20060101
  7. OLANZAPINE [Concomitant]
     Indication: SCHIZOPHRENIA
     Dosage: 10 MG, QD
     Dates: start: 20070901
  8. OLANZAPINE [Concomitant]
     Dosage: UNK
     Dates: start: 20090812
  9. ATENOLOL [Concomitant]
     Indication: HYPERTENSION
     Dosage: 100 MG, QD
     Dates: start: 20060101
  10. CITALOPRAM [Concomitant]
     Indication: DEPRESSION
     Dosage: 1 TABLET IN THE MORNING
     Dates: start: 20081101
  11. CAPTOPRIL [Concomitant]
     Indication: HYPERTENSION

REACTIONS (15)
  - ASTHENIA [None]
  - DIABETES MELLITUS [None]
  - DIZZINESS [None]
  - DRUG INEFFECTIVE [None]
  - DYSPHEMIA [None]
  - DYSSTASIA [None]
  - HYPERGLYCAEMIA [None]
  - ILLUSION [None]
  - LISTLESS [None]
  - PARANOIA [None]
  - READING DISORDER [None]
  - SOCIAL AVOIDANT BEHAVIOUR [None]
  - SOMNOLENCE [None]
  - VISION BLURRED [None]
  - WEIGHT DECREASED [None]
